FAERS Safety Report 5281599-2 (Version None)
Quarter: 2007Q1

REPORT INFORMATION
  Report Type: 
  Country: None (occurrence: None)
  Receive Date: 20070330
  Receipt Date: 20070319
  Transmission Date: 20070707
  Serious: Yes (Hospitalization, Other)
  Sender: FDA-Public Use
  Company Number: PHEH2007US03342

PATIENT
  Age: 62 Year
  Sex: Female
  Weight: 76.643 kg

DRUGS (8)
  1. ESTRADERM [Suspect]
     Indication: HORMONE REPLACEMENT THERAPY
     Route: 062
     Dates: start: 19880101, end: 19960101
  2. COMBIPATCH [Suspect]
     Indication: HORMONE REPLACEMENT THERAPY
     Route: 062
     Dates: start: 19880101, end: 19960101
  3. PROVERA [Suspect]
     Indication: HORMONE REPLACEMENT THERAPY
     Dosage: 2.5 MG, QD
     Route: 048
     Dates: start: 19960101, end: 19980201
  4. PREMPRO [Suspect]
     Indication: HORMONE REPLACEMENT THERAPY
     Dosage: .625/2.5 MG
     Dates: start: 19700101, end: 19980201
  5. PREMARIN [Suspect]
     Indication: HORMONE REPLACEMENT THERAPY
     Dates: start: 19880101, end: 19960101
  6. MESTINON [Concomitant]
     Indication: MYASTHENIA GRAVIS
  7. NEOSTIGMINE BROMIDE [Concomitant]
     Dosage: 15 MG, BID
     Route: 048
  8. EPHEDRINE SUL CAP [Concomitant]
     Dosage: UNK, BID
     Route: 048

REACTIONS (42)
  - AORTIC VALVE SCLEROSIS [None]
  - ARTERIOSCLEROSIS [None]
  - BACK PAIN [None]
  - BILIARY DILATATION [None]
  - BREAST CANCER METASTATIC [None]
  - BREAST CYST [None]
  - BREAST DISORDER [None]
  - BREAST MASS [None]
  - CARDIOMEGALY [None]
  - CEREBRAL ARTERIOSCLEROSIS [None]
  - CEREBRAL ATROPHY [None]
  - CEREBROVASCULAR ACCIDENT [None]
  - CHEST PAIN [None]
  - CHRONIC OBSTRUCTIVE PULMONARY DISEASE [None]
  - CHRONIC SINUSITIS [None]
  - DIVERTICULUM INTESTINAL [None]
  - EFFUSION [None]
  - EJECTION FRACTION DECREASED [None]
  - FIBROCYSTIC BREAST DISEASE [None]
  - HEADACHE [None]
  - HYPERVENTILATION [None]
  - HYSTERECTOMY [None]
  - INNER EAR DISORDER [None]
  - INTERVERTEBRAL DISC DEGENERATION [None]
  - ISCHAEMIC CEREBRAL INFARCTION [None]
  - MITRAL VALVE CALCIFICATION [None]
  - MITRAL VALVE INCOMPETENCE [None]
  - MOOD ALTERED [None]
  - OSTEOARTHRITIS [None]
  - PAIN [None]
  - PALPITATIONS [None]
  - PANIC ATTACK [None]
  - RADICAL MASTECTOMY [None]
  - SALPINGO-OOPHORECTOMY BILATERAL [None]
  - SPINAL OSTEOARTHRITIS [None]
  - TRICUSPID VALVE INCOMPETENCE [None]
  - TUBAL LIGATION [None]
  - UTERINE HAEMORRHAGE [None]
  - VENTRICULAR EXTRASYSTOLES [None]
  - VENTRICULAR HYPERTROPHY [None]
  - VERTIGO [None]
  - VULVAR DYSPLASIA [None]
